FAERS Safety Report 11012389 (Version 1)
Quarter: 2015Q2

REPORT INFORMATION
  Report Type: Spontaneous
  Country: GB (occurrence: GB)
  Receive Date: 20150411
  Receipt Date: 20150411
  Transmission Date: 20150821
  Serious: Yes (Other)
  Sender: FDA-Public Use
  Company Number: GB-JNJFOC-20150401686

PATIENT
  Age: 67 Year
  Sex: Male
  Weight: 106 kg

DRUGS (35)
  1. IBUPROFEN. [Suspect]
     Active Substance: IBUPROFEN
     Indication: PRODUCT USED FOR UNKNOWN INDICATION
     Route: 065
     Dates: start: 20150324
  2. DIPROBASE [Concomitant]
     Active Substance: CHLOROCRESOL
     Dosage: 1 UNITS NOS, CUMULATIVE DOSE: 603.125 UNITS NOS
     Route: 065
     Dates: start: 20140904, end: 20150203
  3. FOSTAIR [Concomitant]
     Active Substance: BECLOMETHASONE\FORMOTEROL
     Dosage: 1 UNITS NOS, CUMULATIVE DOSE: 402.083333 UNITS NOS
     Route: 065
     Dates: start: 20140904
  4. HYLO-FORTE [Concomitant]
     Dosage: APPLY AS DIRECTED. DISCARD 6 MONTHS AFTER OPENING
     Route: 065
     Dates: start: 20140904
  5. NYSTAN [Concomitant]
     Active Substance: NYSTATIN
     Dosage: 1 UNITS NOS, CUMULATIVE DOSE:48
     Route: 065
     Dates: start: 20150312, end: 20150319
  6. TIOTROPIUM [Concomitant]
     Active Substance: TIOTROPIUM
     Dosage: 1 UNITS NOS, CUMULATIVE DOSE: 201.041666
     Route: 065
     Dates: start: 20140904
  7. AMLODIPINE [Concomitant]
     Active Substance: AMLODIPINE BESYLATE
     Dosage: 1 UNITS NOS, CUMULATIVE DOSE: 201.041666
     Route: 065
     Dates: start: 20140904
  8. ATORVASTATIN [Concomitant]
     Active Substance: ATORVASTATIN
     Dosage: 1 UNITS NOS, CUMULATIVE DOSE: 201.041666
     Route: 065
     Dates: start: 20140904
  9. BISOPROLOL [Concomitant]
     Active Substance: BISOPROLOL
     Dosage: 1 UNITS NOS, CUMULATIVE DOSE: 201.041666
     Route: 065
     Dates: start: 20140904
  10. LANSOPRAZOLE. [Concomitant]
     Active Substance: LANSOPRAZOLE
     Dosage: 1 UNITS NOS, ONCE OR TWICE
     Route: 065
     Dates: start: 20140904
  11. QUININE [Concomitant]
     Active Substance: QUININE
     Dosage: USE AS DIRECTED
     Route: 065
     Dates: start: 20140904
  12. AMITRIPTYLINE HYDROCHLORIDE. [Concomitant]
     Active Substance: AMITRIPTYLINE HYDROCHLORIDE
     Dosage: 1 UNITS NOS, CUMULATIVE DOSE: 201.041666
     Route: 065
     Dates: start: 20140904
  13. ALLOPURINOL. [Concomitant]
     Active Substance: ALLOPURINOL
     Dosage: 1 UNITS NOS, CUMULATIVE DOSE:201.041666
     Route: 065
     Dates: start: 20140904
  14. GLYCERYL TRINITRATE [Concomitant]
     Active Substance: NITROGLYCERIN
     Dosage: SPRAY ONE TO TWO DOSES UNDER THE TONGUE
     Route: 065
     Dates: start: 20140904
  15. OILATUM [Concomitant]
     Dosage: AS REQUIRED
     Route: 065
     Dates: start: 20140904
  16. CETIRIZINE [Concomitant]
     Active Substance: CETIRIZINE HYDROCHLORIDE
     Dosage: 1 UNITS NOS, CUMULATIVE DOSE: 201.041666
     Route: 065
     Dates: start: 20140904
  17. PARACETAMOL [Concomitant]
     Active Substance: ACETAMINOPHEN
     Dosage: TAKE 1 OR 2 4
     Route: 065
     Dates: start: 20150312, end: 20150322
  18. FERROUS FUMARATE [Concomitant]
     Active Substance: FERROUS FUMARATE
     Dosage: 1 UNITS NOS, CUMULATIVE DOSE: 603.125 UNITS NOS
     Route: 065
     Dates: start: 20140904
  19. MOXONIDINE [Concomitant]
     Active Substance: MOXONIDINE
     Dosage: 1 UNITS NOS, CUMULATIVE DOSE: 201.041666, IN THE MORNING
     Route: 065
     Dates: start: 20140904
  20. NASEPTIN [Concomitant]
     Active Substance: CHLORHEXIDINE HYDROCHLORIDE\NEOMYCIN SULFATE
     Dosage: APPLY AS DIRECTED
     Route: 065
     Dates: start: 20150114, end: 20150211
  21. NICORANDIL [Concomitant]
     Active Substance: NICORANDIL
     Dosage: 1 UNITS NOS, CUMULATIVE DOSE: 402.083333, SPECIAL CONTAINER
     Route: 065
     Dates: start: 20140904
  22. RECTOGESIC [Concomitant]
     Active Substance: NITROGLYCERIN
     Dosage: APPLY 2.5CM OF OINTMENT TO ANAL CANAL
     Route: 065
     Dates: start: 20150129, end: 20150226
  23. IBUPROFEN. [Suspect]
     Active Substance: IBUPROFEN
     Route: 065
  24. FUROSEMIDE. [Concomitant]
     Active Substance: FUROSEMIDE
     Dosage: 1 UNITS NOS, CUMULATIVE DOSE: 402.083333 UNITS NOS, IN THE AFTERNOON
     Route: 065
     Dates: start: 20140904
  25. LACRI-LUBE [Concomitant]
     Dosage: USE AS DIRECTED AT NIGHT
     Route: 065
     Dates: start: 20140904
  26. VENTOLIN [Concomitant]
     Active Substance: ALBUTEROL SULFATE
     Dosage: 2 UNITS NOS, AS REQUIRED
     Route: 065
     Dates: start: 20140904
  27. BISACODYL. [Concomitant]
     Active Substance: BISACODYL
     Indication: CONSTIPATION
     Dosage: 1UNITS NOS, TAKE 1 OR 2 AT NIGHT
     Route: 065
     Dates: start: 20140904
  28. CORSODYL [Concomitant]
     Active Substance: CHLORHEXIDINE GLUCONATE
     Dosage: 1 UNITS NOS, CUMULATIVE DOSE: 10 UNITS NOS
     Route: 065
     Dates: start: 20150319
  29. DERMOL [Concomitant]
     Active Substance: BENZALKONIUM CHLORIDE\CHLORHEXIDINE HYDROCHLORIDE\ISOPROPYL MYRISTATE\PARAFFIN
     Dosage: USE AS DIRECTED
     Route: 065
     Dates: start: 20140904
  30. METFORMIN [Concomitant]
     Active Substance: METFORMIN HYDROCHLORIDE
     Dosage: 2 UNITS NOS, CUMULATIVE DOSE: 804.166666 WITH MEALS
     Route: 065
     Dates: start: 20140904
  31. PERINDOPRIL ERBUMINE. [Concomitant]
     Active Substance: PERINDOPRIL ERBUMINE
     Dosage: 1 UNITS NOS, CUMULATIVE DOSE: 201.041666, AT 6PM
     Route: 065
     Dates: start: 20140904
  32. CLOPIDOGREL [Concomitant]
     Active Substance: CLOPIDOGREL BISULFATE
     Dosage: 1 UNITS NOS, CUMULATIVE DOSE: 201.041666
     Route: 065
     Dates: start: 20140904
  33. OPTIVE EYE DROPS [Concomitant]
     Dosage: USE AS DIRECTED. DISCARD SIX MONTHS AFTER OPENING
     Route: 065
     Dates: start: 20140904
  34. ASPIRIN. [Concomitant]
     Active Substance: ASPIRIN
     Dosage: 1 UNITS NOS, CUMULATIVE DOSE: 201.041666
     Route: 065
     Dates: start: 20140904
  35. GLICLAZIDE [Concomitant]
     Active Substance: GLICLAZIDE
     Dosage: 1 UNITS NOS, CUMULATIVE DOSE:402.083333 UNITS NOS, WITH MEALS
     Route: 065
     Dates: start: 20140904

REACTIONS (2)
  - Chronic kidney disease [Recovered/Resolved]
  - Malaise [Unknown]

NARRATIVE: CASE EVENT DATE: 20150324
